FAERS Safety Report 4730061-1 (Version None)
Quarter: 2005Q3

REPORT INFORMATION
  Report Type: 
  Country: None (occurrence: None)
  Receive Date: 20050801
  Receipt Date: 20050720
  Transmission Date: 20060218
  Serious: Yes (Other)
  Sender: FDA-Public Use
  Company Number: GB-JNJFOC-20050705795

PATIENT
  Age: 66 Year
  Sex: Female

DRUGS (6)
  1. REMICADE [Suspect]
     Indication: DRUG USE FOR UNKNOWN INDICATION
     Route: 042
  2. ENBREL [Suspect]
     Indication: DRUG USE FOR UNKNOWN INDICATION
     Route: 058
  3. ACTONEL [Concomitant]
     Route: 065
  4. CELEBREX [Concomitant]
     Route: 065
  5. PREDNISOLONE [Concomitant]
     Route: 065
  6. ANTIDEPRESSANT [Concomitant]
     Route: 065

REACTIONS (2)
  - BLADDER CANCER [None]
  - DRUG INEFFECTIVE [None]
